FAERS Safety Report 5467978-9 (Version None)
Quarter: 2007Q3

REPORT INFORMATION
  Report Type: 
  Country: None (occurrence: None)
  Receive Date: 20070925
  Receipt Date: 20070925
  Transmission Date: 20080115
  Serious: No
  Sender: FDA-Public Use
  Company Number: None

PATIENT
  Age: 42 Year
  Sex: Male
  Weight: 98.4306 kg

DRUGS (2)
  1. PRILOSEC [Suspect]
     Indication: GASTROOESOPHAGEAL REFLUX DISEASE
     Dosage: 1 PO QD DAILY PO 1 PO BID TWICE DAILY PO
     Route: 048
  2. PRILOSEC [Suspect]
     Indication: VOCAL CORD THICKENING
     Dosage: 1 PO QD DAILY PO 1 PO BID TWICE DAILY PO
     Route: 048

REACTIONS (1)
  - SURGERY [None]
